FAERS Safety Report 9799035 (Version 1)
Quarter: 2014Q1

REPORT INFORMATION
  Report Type: Spontaneous
  Country: US (occurrence: US)
  Receive Date: 20140106
  Receipt Date: 20140106
  Transmission Date: 20141002
  Serious: No
  Sender: FDA-Public Use
  Company Number: US-GILEAD-2010-0033325

PATIENT
  Sex: Female

DRUGS (10)
  1. LETAIRIS [Suspect]
     Indication: PULMONARY ARTERIAL HYPERTENSION
     Route: 048
     Dates: start: 20101015, end: 20101105
  2. LASIX [Concomitant]
  3. SPIRONOLACTONE [Concomitant]
  4. XIFAXAN [Concomitant]
  5. ACTIGALL [Concomitant]
  6. LACTULOSE [Concomitant]
  7. FOSAMAX [Concomitant]
  8. OS-CAL PLUS D [Concomitant]
  9. K-DUR [Concomitant]
  10. MULTIVITAMIN [Concomitant]

REACTIONS (2)
  - Swelling [Unknown]
  - Weight increased [Unknown]
